FAERS Safety Report 13213074 (Version 1)
Quarter: 2017Q1

REPORT INFORMATION
  Report Type: Spontaneous
  Country: US (occurrence: US)
  Receive Date: 20170210
  Receipt Date: 20170210
  Transmission Date: 20170428
  Serious: Yes (Hospitalization)
  Sender: FDA-Public Use
  Company Number: US-ASTRAZENECA-2017SE13595

PATIENT
  Age: 76 Year
  Sex: Female
  Weight: 86.2 kg

DRUGS (6)
  1. TOLTERODINE [Concomitant]
     Active Substance: TOLTERODINE
     Route: 048
  2. SYMBICORT [Suspect]
     Active Substance: BUDESONIDE\FORMOTEROL FUMARATE DIHYDRATE
     Indication: ASTHMA
     Dosage: 80/4.5 UG, TWO PUFFS, TWO TIMES A DAY
     Route: 055
     Dates: start: 2011
  3. VITAMIN D3 [Concomitant]
     Active Substance: CHOLECALCIFEROL
  4. VITAMIN B12 COMPLEX [Concomitant]
  5. SYMBICORT [Suspect]
     Active Substance: BUDESONIDE\FORMOTEROL FUMARATE DIHYDRATE
     Indication: CHRONIC OBSTRUCTIVE PULMONARY DISEASE
     Dosage: 80/4.5 UG, TWO PUFFS, TWO TIMES A DAY
     Route: 055
     Dates: start: 2011
  6. PANTOPRAZOLE [Concomitant]
     Active Substance: PANTOPRAZOLE SODIUM
     Route: 048

REACTIONS (10)
  - Lung disorder [Recovered/Resolved]
  - Pain [Unknown]
  - Drug dose omission [Unknown]
  - Lower limb fracture [Recovering/Resolving]
  - Off label use [Unknown]
  - Urinary tract infection [Unknown]
  - Malaise [Unknown]
  - Thrombosis [Unknown]
  - Impaired self-care [Unknown]
  - Thyroid hormones increased [Unknown]

NARRATIVE: CASE EVENT DATE: 2011
